APPROVED DRUG PRODUCT: NAPROXEN
Active Ingredient: NAPROXEN
Strength: 500MG
Dosage Form/Route: TABLET;ORAL
Application: A078250 | Product #003 | TE Code: AB
Applicant: GLENMARK PHARMACEUTICALS LTD
Approved: Mar 28, 2007 | RLD: No | RS: No | Type: RX